FAERS Safety Report 15258280 (Version 1)
Quarter: 2018Q3

REPORT INFORMATION
  Report Type: Report from Study
  Country: KR (occurrence: KR)
  Receive Date: 20180809
  Receipt Date: 20180809
  Transmission Date: 20181010
  Serious: Yes (Hospitalization)
  Sender: FDA-Public Use
  Company Number: KR-ROCHE-2163262

PATIENT

DRUGS (1)
  1. BEVACIZUMAB. [Suspect]
     Active Substance: BEVACIZUMAB
     Indication: COLORECTAL CANCER METASTATIC
     Route: 065

REACTIONS (7)
  - Small intestinal perforation [Unknown]
  - Gastric perforation [Unknown]
  - Haemorrhage [Unknown]
  - Wound dehiscence [Unknown]
  - Female genital tract fistula [Unknown]
  - Tumour perforation [Unknown]
  - Large intestine perforation [Unknown]
